FAERS Safety Report 9927961 (Version 2)
Quarter: 2014Q1

REPORT INFORMATION
  Report Type: Spontaneous
  Country: US (occurrence: US)
  Receive Date: 20140227
  Receipt Date: 20140325
  Transmission Date: 20141002
  Serious: No
  Sender: FDA-Public Use
  Company Number: US-PFIZER INC-2014053850

PATIENT
  Age: 86 Year
  Sex: Female

DRUGS (8)
  1. DILANTIN [Suspect]
     Dosage: 200 MG, 2X/DAY (100 MG, 2 TWICE A DAY)
  2. LIPITOR [Suspect]
     Dosage: UNK
  3. NORVASC [Suspect]
     Dosage: UNK
  4. TRAZODONE HCL [Suspect]
     Dosage: UNK
  5. DEMEROL [Suspect]
     Dosage: UNK
  6. LOPRESOR [Suspect]
     Dosage: UNK
  7. ASA [Suspect]
     Dosage: UNK
  8. IMDUR [Suspect]
     Dosage: UNK

REACTIONS (1)
  - Drug hypersensitivity [Unknown]
